FAERS Safety Report 8355493-4 (Version None)
Quarter: 2012Q2

REPORT INFORMATION
  Report Type: 
  Country: None (occurrence: None)
  Receive Date: 20120512
  Receipt Date: 20120501
  Transmission Date: 20120825
  Serious: Yes (Hospitalization, Other)
  Sender: FDA-Public Use
  Company Number: US-ELI_LILLY_AND_COMPANY-US201111008958

PATIENT
  Sex: Female
  Weight: 44.998 kg

DRUGS (20)
  1. ATENOLOL [Concomitant]
  2. THYROID TAB [Concomitant]
  3. VITAMIN D [Concomitant]
  4. LISINOPRIL [Concomitant]
  5. FORTEO [Suspect]
     Dosage: 20 UG, QD
     Route: 065
  6. AMITRIPTYLINE HCL [Concomitant]
  7. ANTIHYPERTENSIVES [Concomitant]
  8. CALCIUM [Concomitant]
  9. PREDNISONE [Concomitant]
  10. FORTEO [Suspect]
     Dosage: 20 UG, QD
     Route: 065
  11. LEXAPRO [Concomitant]
     Dosage: 10 MG, QD
  12. DIFLUNISAL [Concomitant]
  13. FORTEO [Suspect]
     Indication: OSTEOPOROSIS
     Dosage: 20 UG, QD
     Route: 065
     Dates: start: 20110901
  14. FORTEO [Suspect]
     Dosage: 20 UG, QD
     Route: 065
  15. FORTEO [Suspect]
     Dosage: 20 UG, QD
     Route: 065
  16. CYMBALTA [Concomitant]
     Indication: ARTHRITIS
     Dosage: 60 MG, QD
     Dates: start: 20111001
  17. TICAGRELOR [Concomitant]
  18. FORTEO [Suspect]
     Dosage: 20 UG, QD
     Route: 065
  19. PRAVASTATIN SODIUM [Concomitant]
     Dosage: 20 MG, UNKNOWN
  20. SPIRIVA [Concomitant]

REACTIONS (15)
  - CYSTITIS [None]
  - PNEUMONIA [None]
  - DECREASED ACTIVITY [None]
  - KIDNEY INFECTION [None]
  - HYPOKINESIA [None]
  - HYPOAESTHESIA ORAL [None]
  - HEADACHE [None]
  - MUSCULOSKELETAL PAIN [None]
  - INFECTION [None]
  - DRUG DOSE OMISSION [None]
  - HIP FRACTURE [None]
  - MALAISE [None]
  - ARTERIAL OCCLUSIVE DISEASE [None]
  - RESPIRATORY DISORDER [None]
  - DENTAL CARE [None]
